FAERS Safety Report 25617076 (Version 1)
Quarter: 2025Q3

REPORT INFORMATION
  Report Type: Report from Study
  Country: US (occurrence: US)
  Receive Date: 20250729
  Receipt Date: 20250729
  Transmission Date: 20251021
  Serious: Yes (Other)
  Sender: AMGEN
  Company Number: US-AMGEN-USASL2025148112

PATIENT
  Sex: Female

DRUGS (1)
  1. LUMAKRAS [Suspect]
     Active Substance: SOTORASIB
     Indication: Neoplasm malignant
     Dosage: 960 MILLIGRAM, QD
     Route: 065

REACTIONS (2)
  - Malignant neoplasm progression [Unknown]
  - Therapeutic product effect decreased [Unknown]
